FAERS Safety Report 6858177-4 (Version None)
Quarter: 2010Q3

REPORT INFORMATION
  Report Type: 
  Country: None (occurrence: None)
  Receive Date: 20100719
  Receipt Date: 20080204
  Transmission Date: 20110219
  Serious: No
  Sender: FDA-Public Use
  Company Number: US-PFIZER INC-2008012411

PATIENT
  Age: 52 Year
  Sex: Male
  Weight: 90.7 kg

DRUGS (3)
  1. CHANTIX [Suspect]
     Indication: SMOKING CESSATION THERAPY
     Route: 048
     Dates: start: 20071216
  2. ANTIHYPERTENSIVES [Concomitant]
  3. PLAVIX [Concomitant]

REACTIONS (4)
  - EYELID FUNCTION DISORDER [None]
  - FATIGUE [None]
  - HYPERSOMNIA [None]
  - MOOD SWINGS [None]
